FAERS Safety Report 12697870 (Version 2)
Quarter: 2016Q3

REPORT INFORMATION
  Report Type: Spontaneous
  Country: US (occurrence: US)
  Receive Date: 20160830
  Receipt Date: 20160914
  Transmission Date: 20161109
  Serious: Yes (Other)
  Sender: FDA-Public Use
  Company Number: US-DRREDDYS-USA/USA/16/0082658

PATIENT
  Age: 15 Year
  Sex: Male
  Weight: 92.07 kg

DRUGS (4)
  1. ZENATANE [Suspect]
     Active Substance: ISOTRETINOIN
     Indication: ACNE
     Route: 048
     Dates: start: 201604, end: 201605
  2. ZENATANE [Suspect]
     Active Substance: ISOTRETINOIN
     Route: 048
     Dates: start: 201605, end: 201605
  3. IBUPROFEN. [Concomitant]
     Active Substance: IBUPROFEN
     Indication: PRODUCT USED FOR UNKNOWN INDICATION
     Route: 065
  4. ZENATANE [Suspect]
     Active Substance: ISOTRETINOIN
     Route: 065
     Dates: start: 20160825

REACTIONS (6)
  - Affective disorder [Recovering/Resolving]
  - Blood triglycerides increased [Recovering/Resolving]
  - Epistaxis [Recovered/Resolved]
  - Dry skin [Unknown]
  - Fatigue [Recovering/Resolving]
  - Lip dry [Unknown]

NARRATIVE: CASE EVENT DATE: 201604
